FAERS Safety Report 15332207 (Version 1)
Quarter: 2018Q3

REPORT INFORMATION
  Report Type: Spontaneous
  Country: US (occurrence: US)
  Receive Date: 20180829
  Receipt Date: 20180829
  Transmission Date: 20181010
  Serious: No
  Sender: FDA-Public Use
  Company Number: US-VIFOR (INTERNATIONAL) INC.-VIT-2018-08283

PATIENT
  Age: 74 Year
  Sex: Male

DRUGS (13)
  1. JANUMET [Concomitant]
     Active Substance: METFORMIN HYDROCHLORIDE\SITAGLIPTIN PHOSPHATE
  2. VELTASSA [Suspect]
     Active Substance: PATIROMER
     Indication: PRODUCT USED FOR UNKNOWN INDICATION
     Route: 048
  3. ERGOCALCIFEROL~~ASCORBIC ACID~~PYRIDOXINE HYDROCHLORIDE~~THIAMINE HYDROCHLORIDE~~RETINOL~~RIBOFLAVIN [Concomitant]
  4. FLOMAX [Concomitant]
     Active Substance: TAMSULOSIN HYDROCHLORIDE
  5. ACETYLSALICYLIC ACID [Concomitant]
     Active Substance: ASPIRIN
  6. VIAGRA [Concomitant]
     Active Substance: SILDENAFIL CITRATE
  7. AVODART [Concomitant]
     Active Substance: DUTASTERIDE
  8. CLARITIN [Concomitant]
     Active Substance: LORATADINE
  9. CALCIUM [Concomitant]
     Active Substance: CALCIUM
  10. FISH OIL [Concomitant]
     Active Substance: FISH OIL
  11. LIPITOR [Concomitant]
     Active Substance: ATORVASTATIN CALCIUM
  12. CINNAMOMUM VERUM BARK [Concomitant]
     Active Substance: CINNAMON
  13. GLIMEPIRIDE. [Concomitant]
     Active Substance: GLIMEPIRIDE

REACTIONS (4)
  - Flatulence [Unknown]
  - Abdominal pain [Unknown]
  - Abdominal discomfort [Unknown]
  - Drug intolerance [Unknown]
